FAERS Safety Report 8992686 (Version 1)
Quarter: 2013Q1

REPORT INFORMATION
  Report Type: Spontaneous
  Country: GB (occurrence: GB)
  Receive Date: 20130101
  Receipt Date: 20130101
  Transmission Date: 20140127
  Serious: Yes (Life-Threatening)
  Sender: FDA-Public Use
  Company Number: GB-ROCHE-1175142

PATIENT
  Age: 55 Year
  Sex: Male
  Weight: 82.55 kg

DRUGS (2)
  1. AVASTIN [Suspect]
     Indication: HEAD CIRCUMFERENCE ABNORMAL
     Route: 054
     Dates: start: 20120406, end: 20120908
  2. PANADOL [Concomitant]

REACTIONS (1)
  - Hot flush [Recovered/Resolved with Sequelae]
